FAERS Safety Report 20305641 (Version 1)
Quarter: 2022Q1

REPORT INFORMATION
  Report Type: Spontaneous
  Country: SI (occurrence: SI)
  Receive Date: 20220106
  Receipt Date: 20220106
  Transmission Date: 20220423
  Serious: Yes (Other)
  Sender: FDA-Public Use
  Company Number: SI-BAYER-2021A229330

PATIENT
  Age: 90 Year
  Sex: Female

DRUGS (6)
  1. XARELTO [Suspect]
     Active Substance: RIVAROXABAN
     Indication: Atrial fibrillation
     Dosage: 15 MG, UNK
     Route: 048
     Dates: start: 2016
  2. ESCITALOPRAM [Concomitant]
     Active Substance: ESCITALOPRAM OXALATE
     Dosage: 10 MG, UNK
  3. LEVOTHYROXINE SODIUM [Concomitant]
     Active Substance: LEVOTHYROXINE SODIUM
     Dosage: 25 MICROGRAM PER GRAM
  4. CHOLECALCIFEROL [Concomitant]
     Active Substance: CHOLECALCIFEROL
     Dosage: 35 DROP, OW
  5. TELMISARTAN [Concomitant]
     Active Substance: TELMISARTAN
     Dosage: 20 MG, BID
  6. BISOPROLOL [Concomitant]
     Active Substance: BISOPROLOL
     Dosage: 2.5 MG, UNK

REACTIONS (5)
  - Aortic intramural haematoma [Recovering/Resolving]
  - Blood pressure increased [Recovering/Resolving]
  - Chest pain [Recovering/Resolving]
  - Vomiting [Recovering/Resolving]
  - Dyspnoea [Recovering/Resolving]

NARRATIVE: CASE EVENT DATE: 20210819
